FAERS Safety Report 8881563 (Version 1)
Quarter: 2012Q4

REPORT INFORMATION
  Report Type: 
  Country: FR (occurrence: FR)
  Receive Date: 20121101
  Receipt Date: 20121101
  Transmission Date: 20130627
  Serious: Yes (Other)
  Sender: FDA-Public Use
  Company Number: FR-ROCHE-1150444

PATIENT
  Age: 36 Year
  Sex: Female

DRUGS (4)
  1. BEVACIZUMAB [Suspect]
     Indication: COLORECTAL CANCER
     Dosage: 22 courses
     Route: 065
  2. FLUOROURACIL [Concomitant]
     Indication: COLORECTAL CANCER
  3. LEUCOVORIN [Concomitant]
     Indication: COLORECTAL CANCER
  4. IRINOTECAN [Concomitant]
     Indication: COLORECTAL CANCER
     Route: 065

REACTIONS (1)
  - Uterine perforation [Unknown]
